FAERS Safety Report 17475012 (Version 1)
Quarter: 2020Q1

REPORT INFORMATION
  Report Type: Report from Study
  Country: AR (occurrence: AR)
  Receive Date: 20200228
  Receipt Date: 20200228
  Transmission Date: 20200409
  Serious: Yes (Hospitalization)
  Sender: FDA-Public Use
  Company Number: AR-JNJFOC-20190820465

PATIENT
  Age: 78 Year
  Sex: Male

DRUGS (1)
  1. SIMPONI [Suspect]
     Active Substance: GOLIMUMAB
     Indication: PSORIATIC ARTHROPATHY
     Route: 058
     Dates: start: 20130228

REACTIONS (4)
  - Pancreatic disorder [Unknown]
  - Influenza [Recovering/Resolving]
  - Pneumonia [Unknown]
  - Blister [Unknown]

NARRATIVE: CASE EVENT DATE: 20190720
